FAERS Safety Report 21384986 (Version 1)
Quarter: 2022Q3

REPORT INFORMATION
  Report Type: Spontaneous
  Country: US (occurrence: US)
  Receive Date: 20220928
  Receipt Date: 20220928
  Transmission Date: 20221027
  Serious: No
  Sender: FDA-Public Use
  Company Number: US-AVEO ONCOLOGY-2022-AVEO-US000379

PATIENT

DRUGS (12)
  1. FOTIVDA [Suspect]
     Active Substance: TIVOZANIB HYDROCHLORIDE
     Indication: Renal cell carcinoma
     Dosage: 0.89 MG, DAILY
     Route: 048
     Dates: start: 20220828
  2. AMBIEN [Concomitant]
     Active Substance: ZOLPIDEM TARTRATE
  3. FLOVENT [Concomitant]
     Active Substance: FLUTICASONE PROPIONATE
  4. PROAIR HFA [Concomitant]
     Active Substance: ALBUTEROL SULFATE
  5. SYMBICORT [Concomitant]
     Active Substance: BUDESONIDE\FORMOTEROL FUMARATE DIHYDRATE
  6. VALIUM [Concomitant]
     Active Substance: DIAZEPAM
  7. XGEVA [Concomitant]
     Active Substance: DENOSUMAB
  8. LACTULOSE [Concomitant]
     Active Substance: LACTULOSE
  9. MEDROL [Concomitant]
     Active Substance: METHYLPREDNISOLONE
  10. ARMOUR THYROID [Concomitant]
     Active Substance: THYROID, PORCINE
  11. OXYCONTIN [Concomitant]
     Active Substance: OXYCODONE HYDROCHLORIDE
  12. ADDERALL [Concomitant]
     Active Substance: AMPHETAMINE ASPARTATE\AMPHETAMINE SULFATE\DEXTROAMPHETAMINE SACCHARATE\DEXTROAMPHETAMINE SULFATE

REACTIONS (7)
  - Fatigue [Unknown]
  - Stomatitis [Unknown]
  - Oral pain [Unknown]
  - Anxiety [Unknown]
  - Tooth loss [Unknown]
  - Tooth infection [Unknown]
  - Tooth hypoplasia [Unknown]
